FAERS Safety Report 18997271 (Version 1)
Quarter: 2021Q1

REPORT INFORMATION
  Report Type: Report from Study
  Country: US (occurrence: US)
  Receive Date: 20210311
  Receipt Date: 20210311
  Transmission Date: 20210420
  Serious: Yes (Hospitalization)
  Sender: FDA-Public Use
  Company Number: US-EISAI MEDICAL RESEARCH-EC-2021-087800

PATIENT
  Age: 75 Year
  Sex: Female

DRUGS (3)
  1. ZOFRAN [Suspect]
     Active Substance: ONDANSETRON HYDROCHLORIDE
     Indication: PRODUCT USED FOR UNKNOWN INDICATION
     Dosage: UNKNOWN FREQUENCY AND DOSE
     Route: 065
  2. KEYTRUDA [Concomitant]
     Active Substance: PEMBROLIZUMAB
  3. LENVIMA [Suspect]
     Active Substance: LENVATINIB
     Indication: UTERINE CANCER
     Route: 048
     Dates: start: 20210203, end: 2021

REACTIONS (9)
  - Malnutrition [Unknown]
  - Asthenia [Recovering/Resolving]
  - Dysgeusia [Unknown]
  - Appetite disorder [Recovering/Resolving]
  - Fatigue [Not Recovered/Not Resolved]
  - Vomiting [Unknown]
  - Dehydration [Unknown]
  - Abdominal pain [Recovering/Resolving]
  - Intra-abdominal fluid collection [Unknown]

NARRATIVE: CASE EVENT DATE: 2021
